FAERS Safety Report 25183386 (Version 3)
Quarter: 2025Q2

REPORT INFORMATION
  Report Type: Report from Study
  Country: JP (occurrence: JP)
  Receive Date: 20250410
  Receipt Date: 20250630
  Transmission Date: 20250716
  Serious: Yes (Death, Other)
  Sender: NOVARTIS
  Company Number: JP-002147023-NVSJ2025JP002217

PATIENT
  Sex: Male

DRUGS (4)
  1. TAFINLAR [Suspect]
     Active Substance: DABRAFENIB MESYLATE
     Indication: Papillary thyroid cancer
     Route: 048
     Dates: start: 20240205, end: 20240515
  2. TAFINLAR [Suspect]
     Active Substance: DABRAFENIB MESYLATE
     Indication: BRAF V600E mutation positive
     Route: 048
     Dates: start: 20240614, end: 20240802
  3. MEKINIST [Suspect]
     Active Substance: TRAMETINIB DIMETHYL SULFOXIDE
     Indication: Papillary thyroid cancer
     Route: 048
     Dates: start: 20240205, end: 20240515
  4. MEKINIST [Suspect]
     Active Substance: TRAMETINIB DIMETHYL SULFOXIDE
     Indication: BRAF V600E mutation positive
     Route: 048
     Dates: start: 20240614, end: 20240802

REACTIONS (4)
  - Papillary thyroid cancer [Fatal]
  - Malignant neoplasm progression [Fatal]
  - Sepsis [Recovered/Resolved]
  - Infection [Unknown]

NARRATIVE: CASE EVENT DATE: 20240515
